FAERS Safety Report 9151238 (Version 1)
Quarter: 2013Q1

REPORT INFORMATION
  Report Type: Spontaneous
  Country: CN (occurrence: None)
  Receive Date: 20130201
  Receipt Date: 20130201
  Transmission Date: 20140127
  Serious: Yes (Hospitalization)
  Sender: FDA-Public Use
  Company Number: DSA_62208_2013

PATIENT
  Age: 58 Year
  Sex: Female

DRUGS (4)
  1. 5-FU [Suspect]
     Indication: COLORECTAL CANCER METASTATIC
     Dosage: 696 MG EVERY CYCLE INTRAVENOUS BOLUS
     Route: 040
     Dates: start: 20121231, end: 20121231
  2. BLINDED THERAPY [Suspect]
     Indication: COLORECTAL CANCER METASTATIC
     Dosage: 274 MG EVERY CYCLE INTRAVENOUS (NOT OTHER SPECIFIED)
     Route: 042
     Dates: start: 20121231, end: 20121231
  3. IRINOTECAN (IRINOTECAN) [Suspect]
     Indication: COLORECTAL CANCER METASTATIC
     Dosage: 313 MG EVERY CYCLE INTRAVENOUS (NOT OTHERWISE SPECIFIED)
     Route: 042
     Dates: start: 20121231, end: 20121231
  4. LEUCOVORIN [Suspect]
     Indication: COLORECTAL CANCER METASTATIC

REACTIONS (6)
  - Hypertension [None]
  - Local swelling [None]
  - Subclavian vein thrombosis [None]
  - Axillary vein thrombosis [None]
  - Vena cava thrombosis [None]
  - Deep vein thrombosis [None]
